FAERS Safety Report 17306078 (Version 1)
Quarter: 2020Q1

REPORT INFORMATION
  Report Type: Spontaneous
  Country: FR (occurrence: FR)
  Receive Date: 20200123
  Receipt Date: 20200123
  Transmission Date: 20200409
  Serious: Yes (Other)
  Sender: FDA-Public Use
  Company Number: FR-TEVA-2020-FR-1171586

PATIENT
  Age: 24 Year
  Sex: Female

DRUGS (4)
  1. TRAMADOL (CHLORHYDRATE DE) [Suspect]
     Active Substance: TRAMADOL HYDROCHLORIDE
     Indication: PROCEDURAL PAIN
     Dosage: 1 DOSAGE FORM IN TOTAL
     Route: 048
     Dates: start: 20190909, end: 20190909
  2. CLAMOXYL 1 G, COMPRIME DISPERSIBLE [Concomitant]
     Active Substance: AMOXICILLIN
     Indication: DENTAL OPERATION
     Route: 048
     Dates: start: 20190906
  3. FLANID 100 MG, COMPRIME SECABLE [Concomitant]
     Indication: DENTAL OPERATION
     Route: 048
     Dates: start: 20190906
  4. PARACETAMOL [Concomitant]
     Active Substance: ACETAMINOPHEN
     Indication: DENTAL OPERATION
     Dosage: 1 GRAM EVERY 6 HOURS
     Route: 048
     Dates: start: 20190906

REACTIONS (4)
  - Arrested labour [Recovered/Resolved]
  - Malaise [Recovered/Resolved]
  - Nausea [Recovered/Resolved]
  - Vomiting [Recovered/Resolved]

NARRATIVE: CASE EVENT DATE: 20190910
